FAERS Safety Report 10449745 (Version 2)
Quarter: 2014Q3

REPORT INFORMATION
  Report Type: Spontaneous
  Country: US (occurrence: US)
  Receive Date: 20140912
  Receipt Date: 20140912
  Transmission Date: 20150326
  Serious: No
  Sender: FDA-Public Use
  Company Number: US-INCYTE CORPORATION-2014IN001765

PATIENT
  Age: 57 Year
  Sex: Male

DRUGS (6)
  1. OXYCODONE                          /00045603/ [Concomitant]
     Active Substance: OXYCODONE
  2. ALLOPURINOL. [Concomitant]
     Active Substance: ALLOPURINOL
  3. NOVOLOG [Concomitant]
     Active Substance: INSULIN ASPART
  4. JAKAFI [Suspect]
     Active Substance: RUXOLITINIB
     Dosage: NOT SPECIFIED
     Route: 048
     Dates: start: 2014
  5. JAKAFI [Suspect]
     Active Substance: RUXOLITINIB
     Indication: MYELOFIBROSIS
     Dosage: 20 MG, BID
     Route: 048
     Dates: start: 20140602, end: 2014
  6. AMLODIPINE [Concomitant]
     Active Substance: AMLODIPINE BESYLATE

REACTIONS (1)
  - Rash pruritic [Recovered/Resolved]

NARRATIVE: CASE EVENT DATE: 201406
